FAERS Safety Report 21537620 (Version 2)
Quarter: 2022Q4

REPORT INFORMATION
  Report Type: Spontaneous
  Country: US (occurrence: US)
  Receive Date: 20221101
  Receipt Date: 20221125
  Transmission Date: 20230113
  Serious: No
  Sender: FDA-Public Use
  Company Number: US-SA-SAC20221027000241

PATIENT
  Age: 20 Year
  Sex: Female

DRUGS (6)
  1. DUPIXENT [Suspect]
     Active Substance: DUPILUMAB
     Indication: Dermatitis atopic
     Dosage: 300 MG, QOW
     Route: 058
     Dates: start: 20210514
  2. SINGULAIR [Concomitant]
     Active Substance: MONTELUKAST SODIUM
  3. CYANOCOBALAMIN [Concomitant]
     Active Substance: CYANOCOBALAMIN
  4. ZYRTEC [Concomitant]
     Active Substance: CETIRIZINE HYDROCHLORIDE
  5. NORTREL [ETHINYLESTRADIOL;NORETHISTERONE] [Concomitant]
  6. LEVONORGESTREL [Concomitant]
     Active Substance: LEVONORGESTREL

REACTIONS (6)
  - Asthma [Unknown]
  - Impaired quality of life [Unknown]
  - Stress [Unknown]
  - Eye irritation [Unknown]
  - Oropharyngeal pain [Unknown]
  - Injection site reaction [Unknown]

NARRATIVE: CASE EVENT DATE: 20220901
